FAERS Safety Report 9559489 (Version 2)
Quarter: 2013Q4

REPORT INFORMATION
  Report Type: Spontaneous
  Country: US (occurrence: None)
  Receive Date: 20130925
  Receipt Date: 20131002
  Transmission Date: 20140711
  Serious: Yes (Hospitalization)
  Sender: FDA-Public Use
  Company Number: OTH-PAT-2013018

PATIENT
  Sex: Female

DRUGS (1)
  1. CYSTADANE [Suspect]
     Indication: AMINO ACID METABOLISM DISORDER
     Dosage: UNKNOWN
     Dates: start: 20070713

REACTIONS (2)
  - Psychotic disorder [None]
  - Overdose [None]
